FAERS Safety Report 5211648-9 (Version None)
Quarter: 2007Q1

REPORT INFORMATION
  Report Type: 
  Country: None (occurrence: None)
  Receive Date: 20070116
  Receipt Date: 20070116
  Transmission Date: 20070707
  Serious: No
  Sender: FDA-Public Use
  Company Number: None

PATIENT
  Age: 80 Year
  Sex: Male
  Weight: 96.1626 kg

DRUGS (1)
  1. FLOMAX [Suspect]
     Indication: URINE FLOW DECREASED
     Dosage: 0.4 MG P.O. DAILY
     Route: 048
     Dates: start: 20000101, end: 20060101

REACTIONS (2)
  - FLOPPY IRIS SYNDROME [None]
  - PUPIL FIXED [None]
